FAERS Safety Report 8076391-X (Version None)
Quarter: 2012Q1

REPORT INFORMATION
  Report Type: 
  Country: None (occurrence: None)
  Receive Date: 20120127
  Receipt Date: 20120127
  Transmission Date: 20120608
  Serious: Yes (Life-Threatening, Hospitalization)
  Sender: FDA-Public Use
  Company Number: None

PATIENT
  Sex: Female

DRUGS (1)
  1. GAMMAGARD LIQUID [Suspect]
     Indication: HYPOGAMMAGLOBULINAEMIA
     Dosage: 50GM
     Route: 041
     Dates: start: 20120119, end: 20120119

REACTIONS (9)
  - SOMNOLENCE [None]
  - ISCHAEMIC CEREBRAL INFARCTION [None]
  - ANOXIA [None]
  - PULMONARY OEDEMA [None]
  - TACHYCARDIA [None]
  - NAUSEA [None]
  - HYPERVISCOSITY SYNDROME [None]
  - VOMITING [None]
  - ABDOMINAL PAIN [None]
